FAERS Safety Report 21858711 (Version 1)
Quarter: 2023Q1

REPORT INFORMATION
  Report Type: Spontaneous
  Country: US (occurrence: None)
  Receive Date: 20230112
  Receipt Date: 20230112
  Transmission Date: 20230418
  Serious: Yes (Hospitalization)
  Sender: FDA-Public Use
  Company Number: None

PATIENT
  Sex: Female

DRUGS (17)
  1. STELARA [Suspect]
     Active Substance: USTEKINUMAB
     Indication: Crohn^s disease
     Dosage: OTHER FREQUENCY : EVERY 8 WEEKS;?
     Route: 058
     Dates: start: 20220901
  2. AMITRIPTYLIEN TAB [Concomitant]
  3. AZELASTINE SPR [Concomitant]
  4. B-12 SUB [Concomitant]
  5. BREO ELLIPTA INH [Concomitant]
  6. CORTEF TAB [Concomitant]
  7. EFFEXOR TAB [Concomitant]
  8. KLOR-CON TAB ER [Concomitant]
  9. LEVOTHYROXIN TAB [Concomitant]
  10. MONTELUKAST SODIUM [Concomitant]
     Active Substance: MONTELUKAST SODIUM
  11. NEXIUM CAP [Concomitant]
  12. NUCALA [Concomitant]
     Active Substance: MEPOLIZUMAB
  13. NUCALA [Concomitant]
     Active Substance: MEPOLIZUMAB
  14. ROSUVASTATIN [Concomitant]
     Active Substance: ROSUVASTATIN
  15. SINGULAIR TAB [Concomitant]
  16. SPIRIVA SPR [Concomitant]
  17. VITAMIN D CAP [Concomitant]

REACTIONS (1)
  - Hospitalisation [None]
